FAERS Safety Report 5814858-2 (Version None)
Quarter: 2008Q3

REPORT INFORMATION
  Report Type: 
  Country: None (occurrence: None)
  Receive Date: 20080718
  Receipt Date: 20080708
  Transmission Date: 20090109
  Serious: Yes (Hospitalization)
  Sender: FDA-Public Use
  Company Number: FR-AMGEN-US291390

PATIENT
  Sex: Female
  Weight: 67 kg

DRUGS (7)
  1. ENBREL [Suspect]
     Indication: RHEUMATOID ARTHRITIS
     Route: 058
     Dates: start: 20080402, end: 20080522
  2. RIFADIN [Suspect]
     Indication: ANTIBIOTIC PROPHYLAXIS
     Dosage: UNKNOWN
     Route: 065
     Dates: start: 20080303
  3. SEROPLEX [Suspect]
     Dosage: 1.5 TABLET TOTAL DAILY
     Route: 048
     Dates: start: 20080401, end: 20080601
  4. RIMIFON [Suspect]
     Indication: ANTIBIOTIC PROPHYLAXIS
     Dosage: UNKNOWN
     Route: 065
     Dates: start: 20080303, end: 20080401
  5. PYRAZINAMIDE [Suspect]
     Route: 065
  6. XANAX [Concomitant]
     Dosage: 2 MG TOTAL DAILY
     Route: 065
     Dates: start: 20071101
  7. CORTANCYL [Concomitant]
     Indication: RHEUMATOID ARTHRITIS
     Dosage: 7 MG TOTAL DAILY
     Route: 065

REACTIONS (12)
  - ASTHENIA [None]
  - DEPRESSED MOOD [None]
  - DIARRHOEA [None]
  - HEADACHE [None]
  - HEPATITIS ACUTE [None]
  - HYPERHIDROSIS [None]
  - NEUROPATHY PERIPHERAL [None]
  - PYREXIA [None]
  - SHOCK [None]
  - SKIN BURNING SENSATION [None]
  - TREMOR [None]
  - VOMITING [None]
